FAERS Safety Report 4993569-X (Version None)
Quarter: 2006Q2

REPORT INFORMATION
  Report Type: 
  Country: None (occurrence: None)
  Receive Date: 20060504
  Receipt Date: 20060504
  Transmission Date: 20061013
  Serious: Yes (Hospitalization)
  Sender: FDA-Public Use
  Company Number: None

PATIENT
  Age: 20 Year
  Sex: Female

DRUGS (3)
  1. LAMICTAL [Suspect]
     Dosage: ? MG PO ?
     Route: 048
  2. ZITHROMAX [Concomitant]
  3. BENADRYL [Concomitant]

REACTIONS (4)
  - ORAL CANDIDIASIS [None]
  - RASH [None]
  - STOMATITIS [None]
  - URTICARIA [None]
